FAERS Safety Report 23095023 (Version 1)
Quarter: 2023Q4

REPORT INFORMATION
  Report Type: Spontaneous
  Country: US (occurrence: US)
  Receive Date: 20231023
  Receipt Date: 20231023
  Transmission Date: 20240110
  Serious: Yes (Other)
  Sender: FDA-Public Use
  Company Number: US-009507513-2310USA008176

PATIENT
  Sex: Male

DRUGS (2)
  1. KEYTRUDA [Interacting]
     Active Substance: PEMBROLIZUMAB
     Indication: Colon cancer
     Dosage: UNK, EVERY 3 WEEKS (Q3W)
     Route: 042
     Dates: start: 2019
  2. DEXAMETHASONE [Interacting]
     Active Substance: DEXAMETHASONE
     Dosage: UNK, TREATMENT OF BACK PAIN

REACTIONS (5)
  - Malignant neoplasm progression [Unknown]
  - Back pain [Unknown]
  - Therapeutic product effect decreased [Unknown]
  - Drug interaction [Unknown]
  - Product use issue [Unknown]

NARRATIVE: CASE EVENT DATE: 20230401
